FAERS Safety Report 8017006-6 (Version None)
Quarter: 2012Q1

REPORT INFORMATION
  Report Type: 
  Country: None (occurrence: None)
  Receive Date: 20120102
  Receipt Date: 20111228
  Transmission Date: 20120608
  Serious: Yes (Death, Hospitalization, Other)
  Sender: FDA-Public Use
  Company Number: PHEH2009US13536

PATIENT
  Sex: Female
  Weight: 60.317 kg

DRUGS (22)
  1. AMPICILLIN [Concomitant]
  2. FASLODEX [Concomitant]
  3. KLOR-CON [Concomitant]
  4. CHEMOTHERAPEUTICS NOS [Concomitant]
  5. GEMCITABINE [Concomitant]
  6. XELODA [Concomitant]
  7. AREDIA [Suspect]
     Indication: METASTASES TO BONE
  8. AMOXICILLIN [Concomitant]
  9. CENTRUM SILVER [Concomitant]
  10. ARANESP [Concomitant]
  11. TAXOL [Concomitant]
  12. CARBOPLATIN [Concomitant]
  13. AROMASIN [Concomitant]
  14. VANTIN [Concomitant]
  15. CARDIZEM [Concomitant]
  16. ZOFRAN [Concomitant]
  17. LAPATINIB [Concomitant]
  18. RADIATION [Concomitant]
  19. HERCEPTIN [Concomitant]
  20. FERROUS SULFATE TAB [Concomitant]
  21. ZOMETA [Suspect]
  22. PROMETHAZINE [Concomitant]

REACTIONS (100)
  - DEATH [None]
  - OSTEONECROSIS OF JAW [None]
  - OSTEOLYSIS [None]
  - LIVER DISORDER [None]
  - RENAL DISORDER [None]
  - PAIN IN JAW [None]
  - SKIN LESION [None]
  - PERICARDIAL EFFUSION [None]
  - TRICUSPID VALVE INCOMPETENCE [None]
  - HIATUS HERNIA [None]
  - PATHOLOGICAL FRACTURE [None]
  - LUNG NEOPLASM [None]
  - OSTEOMYELITIS [None]
  - SLEEP APNOEA SYNDROME [None]
  - CARDIAC TAMPONADE [None]
  - HEADACHE [None]
  - LEUKOCYTOSIS [None]
  - GENERAL PHYSICAL HEALTH DETERIORATION [None]
  - DYSPNOEA [None]
  - BONE PAIN [None]
  - GASTRITIS [None]
  - LOOSE TOOTH [None]
  - ORAL PAIN [None]
  - METASTASES TO PELVIS [None]
  - INTERVERTEBRAL DISC PROTRUSION [None]
  - RESPIRATORY FAILURE [None]
  - HYPOALBUMINAEMIA [None]
  - BONE LESION [None]
  - HYPOTHYROIDISM [None]
  - METASTASES TO SPINE [None]
  - LYMPHADENOPATHY [None]
  - AORTIC ARTERIOSCLEROSIS [None]
  - GASTRIC POLYPS [None]
  - FEMORAL NECK FRACTURE [None]
  - SPINAL CORD COMPRESSION [None]
  - GINGIVAL SWELLING [None]
  - PERITONSILLAR ABSCESS [None]
  - APHONIA [None]
  - HYPOAESTHESIA [None]
  - BACK PAIN [None]
  - GRAND MAL CONVULSION [None]
  - ATELECTASIS [None]
  - METASTASES TO LUNG [None]
  - METASTASES TO CENTRAL NERVOUS SYSTEM [None]
  - MITRAL VALVE INCOMPETENCE [None]
  - HIP FRACTURE [None]
  - PRIMARY SEQUESTRUM [None]
  - ATRIAL TACHYCARDIA [None]
  - MICROCYTIC ANAEMIA [None]
  - ABDOMINAL PAIN [None]
  - NAUSEA [None]
  - PARAESTHESIA [None]
  - CHOLANGIECTASIS ACQUIRED [None]
  - HAEMORRHOIDS [None]
  - HYPERTENSION [None]
  - MASS [None]
  - OSTEOSCLEROSIS [None]
  - OVERDOSE [None]
  - TRISMUS [None]
  - CHRONIC TONSILLITIS [None]
  - HYPERCALCAEMIA [None]
  - PERONEAL NERVE PALSY [None]
  - ENCEPHALOPATHY [None]
  - CONFUSIONAL STATE [None]
  - URINARY TRACT INFECTION [None]
  - CHRONIC OBSTRUCTIVE PULMONARY DISEASE [None]
  - HYPOKALAEMIA [None]
  - DEAFNESS [None]
  - PULMONARY FIBROSIS [None]
  - PLEURAL EFFUSION [None]
  - CEREBRAL ISCHAEMIA [None]
  - DECUBITUS ULCER [None]
  - EXPOSED BONE IN JAW [None]
  - TOOTH DISORDER [None]
  - WEIGHT DECREASED [None]
  - INFECTION [None]
  - PNEUMOTHORAX [None]
  - CARDIAC FAILURE CONGESTIVE [None]
  - PAIN IN EXTREMITY [None]
  - HYPOMAGNESAEMIA [None]
  - ASTHENIA [None]
  - METASTASES TO BONE [None]
  - SINUS DISORDER [None]
  - MASTICATION DISORDER [None]
  - SENSITIVITY OF TEETH [None]
  - SPINAL OSTEOARTHRITIS [None]
  - BRONCHITIS [None]
  - THROMBOCYTOSIS [None]
  - GASTRITIS EROSIVE [None]
  - DIVERTICULUM [None]
  - SUPRAVENTRICULAR TACHYCARDIA [None]
  - MALNUTRITION [None]
  - INJURY [None]
  - VOMITING [None]
  - CONSTIPATION [None]
  - PYREXIA [None]
  - BACTERAEMIA [None]
  - NEUROPATHY PERIPHERAL [None]
  - DYSPNOEA EXERTIONAL [None]
  - IRON DEFICIENCY ANAEMIA [None]
